FAERS Safety Report 20993234 (Version 2)
Quarter: 2022Q2

REPORT INFORMATION
  Report Type: Spontaneous
  Country: US (occurrence: US)
  Receive Date: 20220622
  Receipt Date: 20220623
  Transmission Date: 20220720
  Serious: No
  Sender: FDA-Public Use
  Company Number: US-PFIZER INC-202200857141

PATIENT
  Age: 61 Year
  Sex: Female
  Weight: 83.46 kg

DRUGS (3)
  1. PAXLOVID [Suspect]
     Active Substance: NIRMATRELVIR\RITONAVIR
     Indication: COVID-19 treatment
     Dosage: [PF-07321332 300 MG]/[RITONAVIR 100 MG]; 2X/DAY
     Dates: start: 20220616, end: 20220618
  2. ZOLOFT [Concomitant]
     Active Substance: SERTRALINE HYDROCHLORIDE
     Dosage: 50 MG, DAILY
  3. KLONOPIN [Concomitant]
     Active Substance: CLONAZEPAM
     Indication: Panic attack
     Dosage: 0.5 MG, AS NEEDED

REACTIONS (8)
  - Dysgeusia [Unknown]
  - Nausea [Recovering/Resolving]
  - Diarrhoea [Unknown]
  - Tongue coated [Recovering/Resolving]
  - Anxiety [Unknown]
  - Panic attack [Unknown]
  - Disease recurrence [Unknown]
  - Coating in mouth [Recovering/Resolving]

NARRATIVE: CASE EVENT DATE: 20220601
